FAERS Safety Report 11644373 (Version 1)
Quarter: 2015Q4

REPORT INFORMATION
  Report Type: Spontaneous
  Country: US (occurrence: None)
  Receive Date: 20151019
  Receipt Date: 20151019
  Transmission Date: 20160304
  Serious: No
  Sender: FDA-Public Use
  Company Number: None

PATIENT
  Age: 58 Year
  Sex: Male
  Weight: 70.31 kg

DRUGS (1)
  1. CERDELGA [Suspect]
     Active Substance: ELIGLUSTAT
     Route: 048
     Dates: start: 20150120, end: 20150801

REACTIONS (4)
  - Malaise [None]
  - Dizziness [None]
  - Retching [None]
  - Abdominal distension [None]

NARRATIVE: CASE EVENT DATE: 20150801
